FAERS Safety Report 8020106-8 (Version None)
Quarter: 2012Q1

REPORT INFORMATION
  Report Type: 
  Country: None (occurrence: None)
  Receive Date: 20120103
  Receipt Date: 20111220
  Transmission Date: 20120608
  Serious: Yes (Death)
  Sender: FDA-Public Use
  Company Number: IT-CELGENEUS-083-50794-11122114

PATIENT
  Sex: Male

DRUGS (2)
  1. VIDAZA [Suspect]
     Dosage: 100 MILLIGRAM
     Route: 058
     Dates: start: 20110905, end: 20110913
  2. VIDAZA [Suspect]

REACTIONS (1)
  - PNEUMONIA [None]
